FAERS Safety Report 9233000 (Version 1)
Quarter: 2013Q2

REPORT INFORMATION
  Report Type: Spontaneous
  Country: US (occurrence: None)
  Receive Date: 20130415
  Receipt Date: 20130415
  Transmission Date: 20140414
  Serious: Yes (Hospitalization)
  Sender: FDA-Public Use
  Company Number: None

PATIENT
  Age: 59 Year
  Sex: Female
  Weight: 47.6 kg

DRUGS (13)
  1. ERLOTINIB [Suspect]
     Indication: NON-SMALL CELL LUNG CANCER
     Route: 048
     Dates: start: 20120301, end: 20120413
  2. DOCETAXEL [Suspect]
     Indication: NON-SMALL CELL LUNG CANCER
     Route: 042
     Dates: start: 20120301, end: 20120410
  3. LORAZEPAM (ATIVAN) [Concomitant]
  4. OXYCODONE [Concomitant]
  5. LOPERAMIDE [Concomitant]
  6. OXYCODONE ER (OXYCONTIN) [Concomitant]
  7. DEXAMETHASONE [Concomitant]
  8. ERGOCALCIFEROL [Concomitant]
  9. VITAMIN D2 (VITAMIN D) [Concomitant]
  10. ALBUTEROL [Concomitant]
  11. FLUOXETINE (PROZAC) [Concomitant]
  12. ONDANSETRON (ZOFRAN ODT) [Concomitant]
  13. METHYLPHENIDATE [Concomitant]

REACTIONS (3)
  - Enterocolitis infectious [None]
  - Clostridium difficile colitis [None]
  - Pancreatitis acute [None]
